FAERS Safety Report 9757327 (Version 2)
Quarter: 2014Q2

REPORT INFORMATION
  Report Type: Spontaneous
  Country: US (occurrence: US)
  Receive Date: 20131214
  Receipt Date: 20140630
  Transmission Date: 20141212
  Serious: No
  Sender: FDA-Public Use
  Company Number: US-B.I. PHARMACEUTICALS,INC./RIDGEFIELD-2013-BI-40233BP

PATIENT
  Age: 50 Year
  Sex: Male
  Weight: 113 kg

DRUGS (2)
  1. COMBIVENT [Suspect]
     Indication: INCREASED UPPER AIRWAY SECRETION
     Dosage: FORMULATION: RESPIMAT INHALATION SPRAY. STRENGTH: 20 MCG / 100 MCG; DAILY DOSE: 80MCG/400MCG
     Route: 055
     Dates: start: 20131128
  2. COMBIVENT [Suspect]
     Indication: WHEEZING

REACTIONS (2)
  - Off label use [Unknown]
  - Incorrect drug dosage form administered [Not Recovered/Not Resolved]
